FAERS Safety Report 6596834-8 (Version None)
Quarter: 2010Q1

REPORT INFORMATION
  Report Type: 
  Country: None (occurrence: None)
  Receive Date: 20100223
  Receipt Date: 20100215
  Transmission Date: 20100710
  Serious: Yes (Hospitalization)
  Sender: FDA-Public Use
  Company Number: GXKR2010GR01864

PATIENT
  Age: 66 Year
  Sex: Female

DRUGS (3)
  1. CIPROFLOXACIN (NGX) [Suspect]
     Indication: PYELONEPHRITIS ACUTE
     Dosage: 1000 MG/DAY
     Route: 065
  2. LEVOTHYROXINE (NGX) [Interacting]
     Indication: THYROID HORMONE REPLACEMENT THERAPY
     Dosage: 150 UG/DAY
     Route: 065
  3. LEVOTHYROXINE (NGX) [Interacting]
     Dosage: 1 MG/DAY [SIC]
     Route: 065

REACTIONS (13)
  - BLISTER [None]
  - BURNING SENSATION [None]
  - DRUG INTERACTION [None]
  - ERYTHEMA [None]
  - FATIGUE [None]
  - HYPERTHYROIDISM [None]
  - NIKOLSKY'S SIGN [None]
  - OVERDOSE [None]
  - PURPURA [None]
  - PYREXIA [None]
  - RASH PRURITIC [None]
  - SINUS TACHYCARDIA [None]
  - STEVENS-JOHNSON SYNDROME [None]
